FAERS Safety Report 14258743 (Version 1)
Quarter: 2017Q4

REPORT INFORMATION
  Report Type: Spontaneous
  Country: PL (occurrence: PL)
  Receive Date: 20171207
  Receipt Date: 20171207
  Transmission Date: 20180321
  Serious: Yes (Other)
  Sender: FDA-Public Use
  Company Number: PL-ASTELLAS-2017US046298

PATIENT
  Age: 70 Year
  Sex: Male

DRUGS (2)
  1. XTANDI [Suspect]
     Active Substance: ENZALUTAMIDE
     Dosage: 3 DF (120 MG), ONCE DAILY
     Route: 048
     Dates: start: 20171117
  2. XTANDI [Suspect]
     Active Substance: ENZALUTAMIDE
     Indication: PRODUCT USED FOR UNKNOWN INDICATION
     Dosage: 4 DF (160 MG), ONCE DAILY
     Route: 048
     Dates: start: 20170930, end: 20171110

REACTIONS (6)
  - Musculoskeletal stiffness [Unknown]
  - Paraesthesia [Recovered/Resolved]
  - General physical health deterioration [Unknown]
  - Oedema peripheral [Unknown]
  - Pain in extremity [Unknown]
  - Fatigue [Unknown]
